FAERS Safety Report 22181076 (Version 1)
Quarter: 2023Q2

REPORT INFORMATION
  Report Type: Report from Study
  Country: BE (occurrence: BE)
  Receive Date: 20230406
  Receipt Date: 20230406
  Transmission Date: 20230721
  Serious: Yes (Death, Other)
  Sender: FDA-Public Use
  Company Number: BE-ABBVIE-4717707

PATIENT
  Age: 75 Year
  Sex: Male

DRUGS (22)
  1. CARBIDOPA\LEVODOPA [Suspect]
     Active Substance: CARBIDOPA\LEVODOPA
     Indication: Parkinson^s disease
     Dosage: MD: 7.0 ML, CD: 5.1 ML/H, ED: 2.0 ML DURING 16 HOURS
     Route: 050
     Dates: start: 20221205, end: 20230228
  2. CARBIDOPA\LEVODOPA [Suspect]
     Active Substance: CARBIDOPA\LEVODOPA
     Dosage: MD: 8.0 ML, CD: 5.2 ML/H, ED: 1.5 ML DURING 16 HOURS
     Route: 050
     Dates: start: 20221122, end: 20221124
  3. CARBIDOPA\LEVODOPA [Suspect]
     Active Substance: CARBIDOPA\LEVODOPA
     Dosage: MD: 6.0 ML, CD: 5.1 ML/H, ED: 1.5 ML DURING 16 HOURS
     Route: 050
     Dates: start: 20230228, end: 20230309
  4. CARBIDOPA\LEVODOPA [Suspect]
     Active Substance: CARBIDOPA\LEVODOPA
     Dosage: MD: 4.0 ML, CD: 4.7 ML/H, ED: 2.0 ML DURING 16 HOURS
     Route: 050
     Dates: start: 20230331, end: 20230402
  5. CARBIDOPA\LEVODOPA [Suspect]
     Active Substance: CARBIDOPA\LEVODOPA
     Dosage: MD: 7.0 ML, CD: 5.1 ML/H, ED: 1.5 ML DURING 16 HOURS
     Route: 050
     Dates: start: 20221124, end: 20221205
  6. CARBIDOPA\LEVODOPA [Suspect]
     Active Substance: CARBIDOPA\LEVODOPA
     Dosage: MD: 4.0 ML, CD: 4.9 ML/H, ED: 2.0 ML DURING 16 HOURS
     Route: 050
     Dates: start: 20230328, end: 20230331
  7. CARBIDOPA\LEVODOPA [Suspect]
     Active Substance: CARBIDOPA\LEVODOPA
     Dosage: MD: 5.0 ML, CD: 5.1 ML/H, ED: 1.5 ML DURING 16 HOURS
     Route: 050
     Dates: start: 20230309, end: 20230328
  8. LIORESAL [Concomitant]
     Active Substance: BACLOFEN
     Indication: Product used for unknown indication
     Dosage: FORM STRENGTH: 10 NO UNIT FREQUENCY TEXT: AT 08.00
  9. BENSERAZIDE\LEVODOPA [Concomitant]
     Active Substance: BENSERAZIDE\LEVODOPA
     Indication: Product used for unknown indication
     Dosage: 0.75 TABLET 08.00,10.00,12.00,14.00,16.00,18.00,20.00?FORM STRENGTH: 250 NO UNIT? FREQUENCY TEXT:...
  10. ALLOPURINOL [Concomitant]
     Active Substance: ALLOPURINOL
     Indication: Product used for unknown indication
     Dosage: FORM STRENGTH: 100 NO UNIT?FREQUENCY TEXT: 08.00
  11. RIVOTRIL [Concomitant]
     Active Substance: CLONAZEPAM
     Indication: Product used for unknown indication
     Dosage: 2.5 MG/ML 3 DROPS?FORM STRENGTH: 2 MG? FREQUENCY TEXT: 20.00
  12. RIVOTRIL [Concomitant]
     Active Substance: CLONAZEPAM
     Indication: Product used for unknown indication
     Dosage: 0.5 TABLET?FORM STRENGTH: 2 MG? FREQUENCY TEXT: 18.00
  13. Requip retard [Concomitant]
     Indication: Product used for unknown indication
     Dosage: 1 TABLET 8 MG
  14. MOTILIUM [Concomitant]
     Active Substance: DOMPERIDONE
     Indication: Product used for unknown indication
     Dosage: FORM STRENGTH: 1 MILLIGRAM/MILLILITERS?FREQUENCY TEXT: AT 08.00, 14.00
  15. ASPIRIN [Concomitant]
     Active Substance: ASPIRIN
     Indication: Product used for unknown indication
     Dosage: FORM STRENGTH: 80 UNKNOWN UNIT, FREQUENCY TEXT: AT 08.00
  16. EDOXABAN TOSYLATE [Concomitant]
     Active Substance: EDOXABAN TOSYLATE
     Indication: Product used for unknown indication
     Dosage: 1 TABLET
  17. OXYCODONE HYDROCHLORIDE [Concomitant]
     Active Substance: OXYCODONE HYDROCHLORIDE
     Indication: Product used for unknown indication
     Dosage: FORM STRENGTH: 5 MG?FREQUENCY TEXT: IF NEEDED
  18. Pantomed [Concomitant]
     Indication: Product used for unknown indication
     Dosage: FORM STRENGTH: 40 UNIT?FREQUENCY TEXT: AT 08.00
  19. BENSERAZIDE\LEVODOPA [Concomitant]
     Active Substance: BENSERAZIDE\LEVODOPA
     Indication: Product used for unknown indication
     Dosage: FORM STRENGTH: 125 NO UNIT
  20. OLMESARTAN [Concomitant]
     Active Substance: OLMESARTAN
     Indication: Product used for unknown indication
     Dosage: FORM STRENGTH: 20 NO UNIT? FREQUENCY TEXT: AT 08.00
  21. FENTANYL [Concomitant]
     Active Substance: FENTANYL
     Indication: Product used for unknown indication
     Dosage: 1 PATCH / 72 HOUR?FORM STRENGTH: 25 MICROGRAM
     Route: 062
  22. REMERGON [Concomitant]
     Active Substance: MIRTAZAPINE
     Indication: Product used for unknown indication
     Dosage: FORM STRENGTH: 30 NO UNIT?FREQUENCY TEXT: 20.00

REACTIONS (2)
  - Death [Fatal]
  - Myocardial infarction [Unknown]

NARRATIVE: CASE EVENT DATE: 20230402
